FAERS Safety Report 18627380 (Version 1)
Quarter: 2020Q4

REPORT INFORMATION
  Report Type: Spontaneous
  Country: US (occurrence: US)
  Receive Date: 20201216
  Receipt Date: 20201216
  Transmission Date: 20210114
  Serious: Yes (Hospitalization)
  Sender: FDA-Public Use
  Company Number: None

PATIENT
  Age: 89 Year
  Sex: Female
  Weight: 54 kg

DRUGS (14)
  1. CEPHALEXIN 500MG [Concomitant]
     Active Substance: CEPHALEXIN
     Dates: start: 20201210
  2. DILTIAZEM CD 180MG [Concomitant]
  3. ESCITALOPRAM 10MG [Concomitant]
     Active Substance: ESCITALOPRAM OXALATE
  4. MIDODRINE 10MG [Concomitant]
     Active Substance: MIDODRINE
  5. BAMLANIVIMAB. [Suspect]
     Active Substance: BAMLANIVIMAB
     Indication: COVID-19
     Dosage: ?          OTHER FREQUENCY:ONCE;?
     Dates: start: 20201210, end: 20201210
  6. DIGOXIN 125MCG [Concomitant]
  7. APIXABAN 2.5MG [Concomitant]
     Active Substance: APIXABAN
  8. DOCUSATE 100MG [Concomitant]
     Active Substance: DOCUSATE
  9. POTASSIUM CHLORIDE 10MEQ [Concomitant]
     Active Substance: POTASSIUM CHLORIDE
  10. ACETAMINOPHEN 650MG [Concomitant]
  11. CETIRIZINE [Concomitant]
     Active Substance: CETIRIZINE HYDROCHLORIDE
  12. GABAPENTIN 100MG [Concomitant]
     Active Substance: GABAPENTIN
  13. LEVITIRACETAM 500MG [Concomitant]
  14. MAGNESIUM HYDROXIDE 2.4MG [Concomitant]

REACTIONS (3)
  - Atrial fibrillation [None]
  - Pleural effusion [None]
  - Pneumonia [None]

NARRATIVE: CASE EVENT DATE: 20201215
